FAERS Safety Report 15992609 (Version 3)
Quarter: 2019Q1

REPORT INFORMATION
  Report Type: Spontaneous
  Country: BR (occurrence: BR)
  Receive Date: 20190221
  Receipt Date: 20190304
  Transmission Date: 20190418
  Serious: Yes (Other)
  Sender: FDA-Public Use
  Company Number: BR-GE HEALTHCARE LIFE SCIENCES-2019CSU000952

PATIENT

DRUGS (2)
  1. OMNISCAN [Suspect]
     Active Substance: GADODIAMIDE
     Indication: NUCLEAR MAGNETIC RESONANCE IMAGING SPINAL
     Dosage: UNK UNK, SINGLE
     Route: 042
     Dates: start: 20190208, end: 20190208
  2. OMNISCAN [Suspect]
     Active Substance: GADODIAMIDE
     Indication: BACK PAIN

REACTIONS (2)
  - Tongue disorder [Recovered/Resolved]
  - Pruritus [Recovered/Resolved]

NARRATIVE: CASE EVENT DATE: 20190208
